FAERS Safety Report 8793961 (Version 1)
Quarter: 2012Q4

REPORT INFORMATION
  Report Type: 
  Country: US (occurrence: US)
  Receive Date: 20120917
  Receipt Date: 20120917
  Transmission Date: 20130627
  Serious: Yes (Other)
  Sender: FDA-Public Use
  Company Number: US-ACTELION-A-NJ2012-71241

PATIENT
  Age: 76 Year
  Sex: Female

DRUGS (4)
  1. VELETRI [Suspect]
     Indication: PULMONARY ARTERIAL HYPERTENSION
     Dosage: 36 ng/kg, per min
     Route: 041
     Dates: start: 20110708
  2. ADCIRCA [Concomitant]
  3. LETAIRIS [Concomitant]
  4. ASPIRIN [Concomitant]

REACTIONS (1)
  - Optic ischaemic neuropathy [Unknown]
